FAERS Safety Report 24176300 (Version 1)
Quarter: 2024Q3

REPORT INFORMATION
  Report Type: Report from Study
  Country: US (occurrence: None)
  Receive Date: 20240806
  Receipt Date: 20240806
  Transmission Date: 20241016
  Serious: Yes (Other)
  Sender: ASTRAZENECA
  Company Number: 2021A781860

PATIENT
  Age: 761 Month
  Sex: Male

DRUGS (1)
  1. CALQUENCE [Suspect]
     Active Substance: ACALABRUTINIB
     Indication: Mantle cell lymphoma
     Route: 048
     Dates: start: 202104

REACTIONS (2)
  - Burning sensation [Unknown]
  - Pain [Unknown]

NARRATIVE: CASE EVENT DATE: 20211001
